FAERS Safety Report 15961510 (Version 1)
Quarter: 2019Q1

REPORT INFORMATION
  Report Type: Spontaneous
  Country: FR (occurrence: FR)
  Receive Date: 20190214
  Receipt Date: 20190214
  Transmission Date: 20190417
  Serious: Yes (Death)
  Sender: FDA-Public Use
  Company Number: FR-TEVA-2019-FR-1010101

PATIENT
  Age: 66 Year
  Sex: Male

DRUGS (9)
  1. ACIDE ASCORBIQUE [Concomitant]
     Active Substance: ASCORBIC ACID
  2. VITAMINE B1 [Concomitant]
     Active Substance: THIAMINE HYDROCHLORIDE
  3. ABASAGLAR [Concomitant]
     Active Substance: INSULIN GLARGINE
  4. NOVORAPID [Concomitant]
     Active Substance: INSULIN ASPART
  5. METFORMINE [Suspect]
     Active Substance: METFORMIN HYDROCHLORIDE
     Indication: TYPE 2 DIABETES MELLITUS
     Dosage: 2550 MILLIGRAM DAILY;
     Route: 048
     Dates: start: 20181228, end: 20190119
  6. LOVENOX [Concomitant]
     Active Substance: ENOXAPARIN SODIUM
  7. ACIDE FOLIQUE [Concomitant]
     Active Substance: FOLIC ACID
  8. NICOBION [Concomitant]
     Active Substance: NIACINAMIDE
  9. MAGNESIUM [Concomitant]
     Active Substance: MAGNESIUM

REACTIONS (1)
  - Lactic acidosis [Fatal]

NARRATIVE: CASE EVENT DATE: 20190119
